FAERS Safety Report 10579953 (Version 3)
Quarter: 2020Q4

REPORT INFORMATION
  Report Type: Spontaneous
  Country: US (occurrence: US)
  Receive Date: 20141112
  Receipt Date: 20201223
  Transmission Date: 20210113
  Serious: No
  Sender: FDA-Public Use
  Company Number: US-ELI_LILLY_AND_COMPANY-US201409009664

PATIENT
  Sex: Female

DRUGS (4)
  1. HUMAN INSULIN [Suspect]
     Active Substance: INSULIN HUMAN
     Indication: TYPE 1 DIABETES MELLITUS
     Dosage: UNK
     Route: 065
  2. LANTUS [Concomitant]
     Active Substance: INSULIN GLARGINE
  3. HUMALOG [Suspect]
     Active Substance: INSULIN LISPRO
     Dosage: UNK UNK, UNKNOWN
     Route: 065
  4. HUMALOG [Suspect]
     Active Substance: INSULIN LISPRO
     Indication: TYPE 1 DIABETES MELLITUS
     Dosage: 3.1 U, PRN
     Route: 065
     Dates: start: 2000

REACTIONS (10)
  - Drug hypersensitivity [Unknown]
  - Blood glucose decreased [Unknown]
  - Incorrect product administration duration [Unknown]
  - Palpitations [Unknown]
  - Blood glucose fluctuation [Unknown]
  - Illness [Unknown]
  - Injection site haemorrhage [Unknown]
  - Tremor [Unknown]
  - Anxiety [Unknown]
  - Blood glucose increased [Unknown]
